FAERS Safety Report 6031642-8 (Version None)
Quarter: 2009Q1

REPORT INFORMATION
  Report Type: 
  Country: None (occurrence: None)
  Receive Date: 20090108
  Receipt Date: 20081231
  Transmission Date: 20090719
  Serious: Yes (Other)
  Sender: FDA-Public Use
  Company Number: US-ROCHE-599382

PATIENT
  Sex: Female

DRUGS (6)
  1. CELLCEPT [Suspect]
     Route: 048
     Dates: start: 20060816
  2. PREDNISONE [Concomitant]
     Route: 048
     Dates: start: 20060101
  3. PLAQUENIL [Concomitant]
     Route: 048
     Dates: start: 20060101
  4. FEMARA [Concomitant]
  5. LARIAM [Concomitant]
  6. PROTEIN [Concomitant]

REACTIONS (1)
  - SYSTEMIC LUPUS ERYTHEMATOSUS [None]
